FAERS Safety Report 8503807-4 (Version None)
Quarter: 2012Q3

REPORT INFORMATION
  Report Type: 
  Country: None (occurrence: None)
  Receive Date: 20120711
  Receipt Date: 20120627
  Transmission Date: 20120928
  Serious: No
  Sender: FDA-Public Use
  Company Number: CA-JNJFOC-20120700273

PATIENT
  Sex: Female

DRUGS (9)
  1. HYDROCORTISONE [Concomitant]
     Route: 065
  2. REMICADE [Suspect]
     Route: 042
     Dates: start: 20000725
  3. CALCIUM [Concomitant]
     Route: 065
  4. REMICADE [Suspect]
     Indication: RHEUMATOID ARTHRITIS
     Route: 042
  5. ACETAMINOPHEN [Concomitant]
     Route: 065
  6. LIPITOR [Concomitant]
     Route: 065
  7. NORVASC [Concomitant]
     Route: 065
  8. OMEPRAZOLE [Concomitant]
  9. VITAMIN D [Concomitant]
     Route: 065

REACTIONS (1)
  - URINARY TRACT INFECTION [None]
